FAERS Safety Report 10080878 (Version 3)
Quarter: 2015Q2

REPORT INFORMATION
  Report Type: Spontaneous
  Country: US (occurrence: None)
  Receive Date: 20140414
  Receipt Date: 20150423
  Transmission Date: 20150821
  Serious: Yes (Life-Threatening, Hospitalization)
  Sender: FDA-Public Use
  Company Number: 1713747-2014-99947

PATIENT
  Age: 44 Year
  Sex: Female
  Weight: 92 kg

DRUGS (19)
  1. FRESENIUS COMBI-SET [Concomitant]
  2. METOPROLOL [Concomitant]
     Active Substance: METOPROLOL
  3. NIFEDIAC CC [Concomitant]
     Active Substance: NIFEDIPINE
  4. ALTACE [Concomitant]
     Active Substance: RAMIPRIL
  5. LEVIMIR INSULIN [Concomitant]
  6. 0.9% SODIUM CHLORIDE INJECTION, USP [Suspect]
     Active Substance: SODIUM CHLORIDE
     Indication: CHRONIC KIDNEY DISEASE
     Dosage: HEMODIALYSIS
     Dates: start: 20140324
  7. 2008K HEMODIALYSIS MACHINE [Concomitant]
  8. ASPIRIN. [Concomitant]
     Active Substance: ASPIRIN
  9. ATARAX [Concomitant]
     Active Substance: HYDROXYZINE\HYDROXYZINE HYDROCHLORIDE
  10. AMBIEN [Concomitant]
     Active Substance: ZOLPIDEM TARTRATE
  11. LOSARTAN [Concomitant]
     Active Substance: LOSARTAN
  12. RENVELA NIFEDIPINE [Concomitant]
  13. FRESENIUS GRANUFLO OR NATURALYTE [Concomitant]
  14. HECTOROL [Concomitant]
     Active Substance: DOXERCALCIFEROL
  15. INTEGRA PLUS [Concomitant]
     Active Substance: ASCORBIC ACID\BIOTIN\CALCIUM PANTOTHENATE\FERROUS ASPARTO GLYCINATE\FERROUS FUMARATE\FOLIC ACID\NIACIN\PYRIDOXINE HYDROCHLORIDE\RIBOFLAVIN\THIAMINE MONONITRATE
  16. EPOGEN [Concomitant]
     Active Substance: ERYTHROPOIETIN
  17. FRESENIUS DIALYZER [Concomitant]
  18. HYDRALAZINE [Concomitant]
     Active Substance: HYDRALAZINE HYDROCHLORIDE
  19. NOVOLOG INSULIN [Concomitant]

REACTIONS (5)
  - No therapeutic response [None]
  - Malaise [None]
  - Cardio-respiratory arrest [None]
  - Cardiac arrest [None]
  - Loss of consciousness [None]

NARRATIVE: CASE EVENT DATE: 20140324
